FAERS Safety Report 18602822 (Version 2)
Quarter: 2020Q4

REPORT INFORMATION
  Report Type: Spontaneous
  Country: US (occurrence: US)
  Receive Date: 20201211
  Receipt Date: 20201222
  Transmission Date: 20210114
  Serious: Yes (Death, Life-Threatening, Hospitalization, Other)
  Sender: FDA-Public Use
  Company Number: US-AUROBINDO-AUR-APL-2020-059885

PATIENT
  Age: 55 Year
  Sex: Male

DRUGS (3)
  1. METHYLPREDNISOLONE. [Concomitant]
     Active Substance: METHYLPREDNISOLONE
     Indication: GRAFT VERSUS HOST DISEASE
     Dosage: 40 MILLIGRAM, ONCE A DAY
     Route: 065
  2. VORICONAZOLE. [Suspect]
     Active Substance: VORICONAZOLE
     Indication: PNEUMONIA FUNGAL
     Dosage: UNK (LONG-TERM VRC EXPOSURE)
     Route: 065
  3. TACROLIMUS. [Suspect]
     Active Substance: TACROLIMUS
     Indication: PROPHYLAXIS AGAINST GRAFT VERSUS HOST DISEASE
     Dosage: 2.5 MILLIGRAM, ONCE A DAY
     Route: 065

REACTIONS (1)
  - Disseminated mucormycosis [Fatal]
